FAERS Safety Report 4800060-X (Version None)
Quarter: 2005Q4

REPORT INFORMATION
  Report Type: 
  Country: None (occurrence: None)
  Receive Date: 20051013
  Receipt Date: 20051013
  Transmission Date: 20060501
  Serious: Yes (Other)
  Sender: FDA-Public Use
  Company Number: None

PATIENT
  Sex: Female
  Weight: 70.3075 kg

DRUGS (1)
  1. ARTICAINE [Suspect]
     Indication: TOOTH DISORDER
     Dosage: ONE INJECTION PO
     Route: 048
     Dates: start: 20051005, end: 20051005

REACTIONS (2)
  - ANAESTHETIC COMPLICATION [None]
  - HYPOAESTHESIA [None]
